FAERS Safety Report 6097007-8 (Version None)
Quarter: 2009Q1

REPORT INFORMATION
  Report Type: 
  Country: None (occurrence: None)
  Receive Date: 20090227
  Receipt Date: 20090218
  Transmission Date: 20090719
  Serious: Yes (Other)
  Sender: FDA-Public Use
  Company Number: PHHY2009JP06340

PATIENT
  Age: 49 Year
  Sex: Male

DRUGS (4)
  1. SIMULECT [Suspect]
     Indication: RENAL TRANSPLANT
  2. TACROLIMUS [Concomitant]
     Indication: RENAL TRANSPLANT
  3. MYCOPHENOLATE MOFETIL [Concomitant]
     Indication: RENAL TRANSPLANT
  4. METHYLPREDNISOLONE 4MG TAB [Concomitant]
     Indication: RENAL TRANSPLANT

REACTIONS (4)
  - DISSEMINATED INTRAVASCULAR COAGULATION [None]
  - HYPERKALAEMIA [None]
  - STAPHYLOCOCCAL INFECTION [None]
  - TRANSPLANT REJECTION [None]
